FAERS Safety Report 18969070 (Version 1)
Quarter: 2021Q1

REPORT INFORMATION
  Report Type: Spontaneous
  Country: US (occurrence: US)
  Receive Date: 20210304
  Receipt Date: 20210304
  Transmission Date: 20210420
  Serious: Yes (Disabling)
  Sender: FDA-Public Use
  Company Number: None

PATIENT
  Age: 33 Year
  Sex: Female
  Weight: 64.8 kg

DRUGS (3)
  1. BACLOFEN. [Concomitant]
     Active Substance: BACLOFEN
     Dates: start: 20140616
  2. DALFAMPRIDINE. [Suspect]
     Active Substance: DALFAMPRIDINE
     Indication: MULTIPLE SCLEROSIS
     Route: 048
     Dates: start: 20210128
  3. OCREVUS [Concomitant]
     Active Substance: OCRELIZUMAB
     Dates: start: 20210111

REACTIONS (4)
  - Product substitution issue [None]
  - Gait disturbance [None]
  - Balance disorder [None]
  - Fall [None]

NARRATIVE: CASE EVENT DATE: 20210128
